FAERS Safety Report 20302935 (Version 1)
Quarter: 2022Q1

REPORT INFORMATION
  Report Type: Spontaneous
  Country: DE (occurrence: DE)
  Receive Date: 20220106
  Receipt Date: 20220106
  Transmission Date: 20220423
  Serious: Yes (Hospitalization, Other)
  Sender: FDA-Public Use
  Company Number: DE-ADRED-05804-02

PATIENT
  Age: 67 Year
  Sex: Male
  Weight: 95 kg

DRUGS (11)
  1. CLOPIDOGREL [Suspect]
     Active Substance: CLOPIDOGREL BISULFATE
     Indication: Product used for unknown indication
     Dosage: 75 MG, 0-1-0-0, TABLETS ()
     Route: 048
  2. CITALOPRAM [Suspect]
     Active Substance: CITALOPRAM HYDROBROMIDE
     Indication: Product used for unknown indication
     Dosage: 20 MG, 1-0-0-0, TABLETS ()
     Route: 048
  3. ASPIRIN [Suspect]
     Active Substance: ASPIRIN
     Indication: Product used for unknown indication
     Dosage: 100 MG, 0-0-1-0, TABLETS ()
     Route: 048
  4. FERRO-SANOL DUODENAL [Suspect]
     Active Substance: FERROUS GLYCINE SULFATE
     Indication: Product used for unknown indication
     Dosage: 50 MG, 2-0-0-0, CAPSULES ()
     Route: 048
  5. ZOLPIDEM [Concomitant]
     Active Substance: ZOLPIDEM TARTRATE
     Indication: Product used for unknown indication
     Dosage: 5 MG, 0-0-0-1, TABLETS ()
     Route: 048
  6. humalog 100 e / ml injection solution [Concomitant]
     Indication: Product used for unknown indication
     Dosage: 6-5-4-0, SOLUTION FOR INJECTION / INFUSION ()
     Route: 058
  7. EZETIMIBE\SIMVASTATIN [Concomitant]
     Active Substance: EZETIMIBE\SIMVASTATIN
     Indication: Product used for unknown indication
     Dosage: 10|20 MG, 0-0-1-0, TABLETS ()
     Route: 048
  8. trulicity 1,5 [Concomitant]
     Indication: Product used for unknown indication
     Dosage: 1.5 MG, WEEKLY, SOLUTION FOR INJECTION / INFUSION ()
     Route: 058
  9. PROPRANOLOL [Concomitant]
     Active Substance: PROPRANOLOL HYDROCHLORIDE
     Indication: Product used for unknown indication
     Dosage: 10 MG, 1-1-1-0, TABLETS ()
     Route: 048
  10. METFORMIN [Concomitant]
     Active Substance: METFORMIN HYDROCHLORIDE
     Indication: Product used for unknown indication
     Dosage: 1000 MG, 1-0-1-0, TABLETS ()
     Route: 048
  11. lantus 100 i.e./ml injection solution [Concomitant]
     Indication: Product used for unknown indication
     Dosage: UNK, 0-0-0-30, SOLUTION FOR INJECTION / INFUSION ()
     Route: 058

REACTIONS (5)
  - Angina pectoris [Unknown]
  - Asthenia [Unknown]
  - Haematochezia [Unknown]
  - General physical health deterioration [Unknown]
  - Medication error [Unknown]
